FAERS Safety Report 6020158-0 (Version None)
Quarter: 2008Q4

REPORT INFORMATION
  Report Type: 
  Country: None (occurrence: None)
  Receive Date: 20081223
  Receipt Date: 20081223
  Transmission Date: 20090506
  Serious: No
  Sender: FDA-Public Use
  Company Number: None

PATIENT
  Sex: Male
  Weight: 77.1115 kg

DRUGS (1)
  1. HYDROCODONE BITARTRATE + ACETAMINOPHEN [Suspect]
     Indication: HAEMORRHOID OPERATION
     Dosage: 1 6 HOURS PO
     Route: 048
     Dates: start: 20081220, end: 20081221

REACTIONS (1)
  - NIGHTMARE [None]
